FAERS Safety Report 4656048-5 (Version None)
Quarter: 2005Q2

REPORT INFORMATION
  Report Type: 
  Country: None (occurrence: None)
  Receive Date: 20050505
  Receipt Date: 20050426
  Transmission Date: 20051028
  Serious: Yes (Hospitalization)
  Sender: FDA-Public Use
  Company Number: 2005-01415

PATIENT
  Age: 21 Year
  Sex: Female

DRUGS (1)
  1. PROMETHAZINE [Suspect]
     Indication: VOMITING
     Dosage: 50 MG, SINGLE, INTRAMUSCULAR
     Route: 030
     Dates: start: 20050101, end: 20050101

REACTIONS (1)
  - NEUROLEPTIC MALIGNANT SYNDROME [None]
